FAERS Safety Report 5685253-4 (Version None)
Quarter: 2008Q1

REPORT INFORMATION
  Report Type: 
  Country: None (occurrence: None)
  Receive Date: 20080328
  Receipt Date: 20080321
  Transmission Date: 20080703
  Serious: Yes (Hospitalization)
  Sender: FDA-Public Use
  Company Number: GR-ABBOTT-08P-066-0443710-00

PATIENT
  Age: 76 Year
  Sex: Female
  Weight: 61 kg

DRUGS (9)
  1. ZEMPLAR [Suspect]
     Indication: HYPERPARATHYROIDISM SECONDARY
     Route: 042
     Dates: start: 20070414, end: 20070910
  2. SEVELAMER [Concomitant]
     Indication: HYPERPHOSPHATASAEMIA
     Dates: start: 20070701
  3. EPOETIN BETA [Concomitant]
     Indication: ANAEMIA
     Route: 042
     Dates: start: 20080308
  4. CLOPIDOGREL [Concomitant]
     Indication: HYPERCOAGULATION
     Route: 048
     Dates: start: 20060601
  5. QUETIAPINE FUMARATE [Concomitant]
     Indication: PSYCHOTIC DISORDER
     Route: 048
     Dates: start: 20060601
  6. ALPRAZOLAM [Concomitant]
     Indication: PSYCHOTIC DISORDER
     Route: 048
     Dates: start: 20070401
  7. SOTALOL [Concomitant]
     Indication: ATRIAL FIBRILLATION
     Dates: start: 20070301
  8. PAROXETINE HCL [Concomitant]
     Indication: PSYCHOTIC DISORDER
     Dates: start: 20070301
  9. SIMVASTATIN [Concomitant]
     Indication: HYPERLIPIDAEMIA
     Route: 048
     Dates: start: 20070501

REACTIONS (2)
  - BACTERAEMIA [None]
  - PYREXIA [None]
